FAERS Safety Report 9920713 (Version 1)
Quarter: 2014Q1

REPORT INFORMATION
  Report Type: Spontaneous
  Country: None (occurrence: US)
  Receive Date: 20140224
  Receipt Date: 20140224
  Transmission Date: 20141002
  Serious: No
  Sender: FDA-Public Use
  Company Number: US-NOVEN-14US008683

PATIENT
  Age: 52 Year
  Sex: Female

DRUGS (1)
  1. MINIVELLE [Suspect]
     Indication: HOT FLUSH
     Dosage: 0.0375 MG/DAY, TWICE WEEKLY
     Route: 062
     Dates: start: 201401

REACTIONS (1)
  - Feeling hot [Not Recovered/Not Resolved]
